FAERS Safety Report 10214607 (Version 4)
Quarter: 2014Q4

REPORT INFORMATION
  Report Type: Report from Study
  Country: GB (occurrence: GB)
  Receive Date: 20140603
  Receipt Date: 20141201
  Transmission Date: 20150528
  Serious: Yes (Death)
  Sender: FDA-Public Use
  Company Number: GB-GLAXOSMITHKLINE-B0998880A

PATIENT
  Age: 74 Year
  Sex: Male
  Weight: 54 kg

DRUGS (10)
  1. GABAPENTIN. [Concomitant]
     Active Substance: GABAPENTIN
     Indication: PAIN
     Dosage: 600 MG, QD
     Route: 048
     Dates: start: 201403, end: 20140512
  2. ORAMORPH SR SUSTAINED RELEASE [Concomitant]
     Active Substance: MORPHINE SULFATE
     Indication: PAIN
     Dosage: 10 ML, PRN
     Route: 048
     Dates: start: 201403, end: 20140512
  3. PARACETAMOL [Concomitant]
     Active Substance: ACETAMINOPHEN
     Indication: PAIN
     Dosage: 1 G, QID
     Route: 048
     Dates: start: 201309
  4. OMEPRAZOLE. [Concomitant]
     Active Substance: OMEPRAZOLE
     Indication: HIATUS HERNIA
     Dosage: 20 MG, QD
     Route: 048
     Dates: start: 20100104, end: 20140512
  5. ZOMORPH [Concomitant]
     Active Substance: MORPHINE SULFATE
     Indication: PAIN
     Dosage: 30 MG, BID
     Route: 048
     Dates: start: 201403, end: 20140512
  6. PAZOPANIB [Suspect]
     Active Substance: PAZOPANIB
     Indication: BLADDER TRANSITIONAL CELL CARCINOMA
     Dosage: 800 MG, QD
     Route: 048
     Dates: start: 20140401, end: 20140510
  7. AMITRIPTYLINE [Concomitant]
     Active Substance: AMITRIPTYLINE
     Indication: PAIN
     Dosage: 20 MG, QD
     Route: 048
     Dates: start: 201403, end: 20140512
  8. LACTULOSE. [Concomitant]
     Active Substance: LACTULOSE
     Indication: CONSTIPATION
     Dosage: 10 ML, PRN
     Route: 048
     Dates: start: 201403, end: 20140512
  9. METOCLOPRAMIDE. [Concomitant]
     Active Substance: METOCLOPRAMIDE
     Indication: VOMITING
     Dosage: 10 MG, QD
     Route: 048
     Dates: start: 20100104, end: 20140512
  10. DIAZEPAM. [Concomitant]
     Active Substance: DIAZEPAM
     Indication: MUSCLE RELAXANT THERAPY
     Dosage: 2.5 MG, TID
     Route: 048
     Dates: start: 201403, end: 20140512

REACTIONS (1)
  - Disease progression [Fatal]

NARRATIVE: CASE EVENT DATE: 20140512
